FAERS Safety Report 9822909 (Version 3)
Quarter: 2015Q3

REPORT INFORMATION
  Report Type: Spontaneous
  Country: US (occurrence: US)
  Receive Date: 20140116
  Receipt Date: 20150806
  Transmission Date: 20151125
  Serious: No
  Sender: FDA-Public Use
  Company Number: US-GILEAD-2010-0031193

PATIENT
  Age: 73 Year
  Sex: Female
  Weight: 46.72 kg

DRUGS (6)
  1. LETAIRIS [Suspect]
     Active Substance: AMBRISENTAN
     Indication: PULMONARY ARTERIAL HYPERTENSION
     Route: 048
     Dates: start: 20100802, end: 20100920
  2. VITAMIN D [Concomitant]
     Active Substance: CHOLECALCIFEROL
  3. ASPIRIN. [Concomitant]
     Active Substance: ASPIRIN
  4. SPIRIVA [Concomitant]
     Active Substance: TIOTROPIUM BROMIDE MONOHYDRATE
  5. BONIVA [Concomitant]
     Active Substance: IBANDRONATE SODIUM
  6. ADVAIR HFA [Concomitant]
     Active Substance: FLUTICASONE PROPIONATE\SALMETEROL XINAFOATE

REACTIONS (8)
  - Dyspnoea [Unknown]
  - Nasal congestion [Unknown]
  - Chest discomfort [Unknown]
  - Oedema peripheral [Unknown]
  - Decreased appetite [Unknown]
  - Weight decreased [Unknown]
  - Dyspepsia [Unknown]
  - Rhinorrhoea [Unknown]
